FAERS Safety Report 23481151 (Version 2)
Quarter: 2024Q1

REPORT INFORMATION
  Report Type: Spontaneous
  Country: US (occurrence: US)
  Receive Date: 20240205
  Receipt Date: 20240207
  Transmission Date: 20240409
  Serious: No
  Sender: FDA-Public Use
  Company Number: US-Ipsen Biopharmaceuticals, Inc.-2024-01669

PATIENT
  Age: 44 Year
  Sex: Female

DRUGS (6)
  1. DYSPORT [Suspect]
     Active Substance: ABOBOTULINUMTOXINA
     Indication: Skin wrinkling
     Route: 065
     Dates: start: 20240116, end: 20240116
  2. DYSPORT [Suspect]
     Active Substance: ABOBOTULINUMTOXINA
     Indication: Off label use
     Route: 065
     Dates: start: 202401, end: 202401
  3. WELLBUTRIN [Concomitant]
     Active Substance: BUPROPION HYDROCHLORIDE
     Indication: Depression
  4. PROZAC [Concomitant]
     Active Substance: FLUOXETINE HYDROCHLORIDE
     Indication: Depression
  5. RETIN-A [Concomitant]
     Active Substance: TRETINOIN
     Indication: Skin wrinkling
  6. BOTOX [Concomitant]
     Active Substance: ONABOTULINUMTOXINA
     Indication: Skin wrinkling

REACTIONS (7)
  - Drug ineffective [Unknown]
  - Product preparation error [Unknown]
  - Product temperature excursion issue [Unknown]
  - Off label use [Unknown]
  - Off label use [Unknown]
  - Product preparation issue [Unknown]
  - Product quality issue [Unknown]

NARRATIVE: CASE EVENT DATE: 20240101
